FAERS Safety Report 7492982-9 (Version None)
Quarter: 2011Q2

REPORT INFORMATION
  Report Type: 
  Country: None (occurrence: None)
  Receive Date: 20110519
  Receipt Date: 20110519
  Transmission Date: 20111010
  Serious: Yes (Hospitalization)
  Sender: FDA-Public Use
  Company Number: None

PATIENT

DRUGS (3)
  1. TEMSIROLIMUS [Suspect]
     Indication: GLIOMA
     Dosage: 35MG/M2 IV WEEKLY
     Route: 042
     Dates: start: 20110516
  2. TEMSIROLIMUS [Suspect]
     Indication: GLIOMA
     Dosage: 35MG/M2 IV WEEKLY
     Route: 042
     Dates: start: 20110509
  3. VALPROIC ACID [Concomitant]

REACTIONS (5)
  - POLLAKIURIA [None]
  - BLOOD SODIUM INCREASED [None]
  - DEHYDRATION [None]
  - INCONTINENCE [None]
  - FLUID INTAKE REDUCED [None]
